FAERS Safety Report 7180431-X (Version None)
Quarter: 2010Q4

REPORT INFORMATION
  Report Type: 
  Country: None (occurrence: None)
  Receive Date: 20101221
  Receipt Date: 20101214
  Transmission Date: 20110411
  Serious: Yes (Other)
  Sender: FDA-Public Use
  Company Number: B0690211A

PATIENT
  Sex: Female

DRUGS (1)
  1. ZINNAT [Suspect]
     Indication: ANTI-INFECTIVE THERAPY
     Dosage: 500MG PER DAY
     Route: 048
     Dates: start: 20101208, end: 20101208

REACTIONS (8)
  - ERYTHEMA [None]
  - HYPERSENSITIVITY [None]
  - HYPOAESTHESIA [None]
  - HYPOAESTHESIA ORAL [None]
  - HYPOTENSION [None]
  - PRURITUS [None]
  - RASH GENERALISED [None]
  - SWELLING [None]
